FAERS Safety Report 10143080 (Version 2)
Quarter: 2014Q2

REPORT INFORMATION
  Report Type: Spontaneous
  Country: BR (occurrence: BR)
  Receive Date: 20140430
  Receipt Date: 20140612
  Transmission Date: 20141212
  Serious: Yes (Hospitalization)
  Sender: FDA-Public Use
  Company Number: BR-SA-2014SA054633

PATIENT
  Age: 7 Year
  Sex: Female

DRUGS (3)
  1. LANTUS [Suspect]
     Indication: TYPE 1 DIABETES MELLITUS
     Dosage: DOSE:20 UNIT(S)
     Route: 058
     Dates: start: 20101008
  2. AUTOPEN 24 [Suspect]
     Indication: DEVICE THERAPY
     Route: 065
     Dates: start: 20101008
  3. CARBAMAZEPINE [Concomitant]
     Indication: CONVULSION
     Route: 048

REACTIONS (6)
  - Syncope [Recovered/Resolved]
  - Malaise [Recovered/Resolved]
  - Pallor [Recovered/Resolved]
  - Skin discolouration [Recovered/Resolved]
  - Vomiting [Recovered/Resolved]
  - Headache [Recovered/Resolved]
